FAERS Safety Report 6346609-X (Version None)
Quarter: 2009Q3

REPORT INFORMATION
  Report Type: 
  Country: None (occurrence: None)
  Receive Date: 20090909
  Receipt Date: 20090831
  Transmission Date: 20100115
  Serious: Yes (Hospitalization)
  Sender: FDA-Public Use
  Company Number: JP-ABBOTT-09P-087-0502636-00

PATIENT
  Sex: Female

DRUGS (12)
  1. HUMIRA [Suspect]
     Indication: RHEUMATOID ARTHRITIS
     Route: 058
     Dates: start: 20081206, end: 20081220
  2. GARENOXACIN [Concomitant]
     Indication: DRUG USE FOR UNKNOWN INDICATION
  3. BETAMETHASONE [Concomitant]
     Indication: RHEUMATOID ARTHRITIS
     Route: 048
     Dates: end: 20081219
  4. BETAMETHASONE [Concomitant]
     Route: 048
     Dates: start: 20081220, end: 20081222
  5. FAMOTIDINE [Concomitant]
     Indication: GASTRITIS PROPHYLAXIS
  6. DICLOFENAC SODIUM [Concomitant]
     Indication: RHEUMATOID ARTHRITIS
  7. ROSUVASTATIN CALCIUM [Concomitant]
     Indication: DRUG USE FOR UNKNOWN INDICATION
  8. FUROSEMIDE [Concomitant]
     Indication: OEDEMA PERIPHERAL
  9. SENNOSIDE [Concomitant]
     Indication: DRUG USE FOR UNKNOWN INDICATION
  10. ISONIAZID [Concomitant]
     Indication: ANTIBIOTIC PROPHYLAXIS
  11. CLARITHROMYCIN [Concomitant]
     Indication: INFECTION PROPHYLAXIS
  12. SULFAMETHOXAZOLE AND TRIMETHOPRIM [Concomitant]
     Indication: ANTIFUNGAL PROPHYLAXIS

REACTIONS (1)
  - TENDON RUPTURE [None]
